FAERS Safety Report 5572885-7 (Version None)
Quarter: 2007Q4

REPORT INFORMATION
  Report Type: 
  Country: None (occurrence: None)
  Receive Date: 20071223
  Receipt Date: 20071217
  Transmission Date: 20080405
  Serious: Yes (Hospitalization, Other)
  Sender: FDA-Public Use
  Company Number: PHEH2007US10513

PATIENT
  Age: 54 Year
  Sex: Female

DRUGS (19)
  1. AREDIA [Suspect]
     Indication: METASTASES TO BONE
     Dosage: 90 MG EVERY MONTH
     Dates: start: 20041001, end: 20070517
  2. ZOMETA [Suspect]
     Indication: METASTASES TO BONE
     Dosage: 4 MG, UNK
     Dates: start: 20070801
  3. ZOMETA [Suspect]
     Dosage: 4 MG, UNK
  4. LEVOTHYROXINE SODIUM [Concomitant]
     Indication: AUTOIMMUNE THYROIDITIS
     Dosage: 0.075 MG, QD
     Dates: start: 20070201
  5. LEVOTHYROXINE SODIUM [Concomitant]
     Dosage: 75 MCG DAILY
     Dates: end: 20060325
  6. RITALIN [Concomitant]
     Indication: NARCOLEPSY
     Dosage: 40 MG, PRN
  7. RITALIN [Concomitant]
     Dosage: 40 MG, QID
  8. FEMARA [Suspect]
     Indication: BREAST CANCER
     Dosage: 2.5 MG, QD
     Route: 048
     Dates: start: 20041001, end: 20070222
  9. NEURONTIN [Concomitant]
     Indication: PIRIFORMIS SYNDROME
     Dosage: 300 MG, BID
  10. NEURONTIN [Concomitant]
     Dosage: 300 MG, TID
  11. TUMS [Concomitant]
     Indication: PROPHYLAXIS
     Dosage: 2 TABS QID
  12. SODIUM FLUORIDE [Concomitant]
     Indication: DRY MOUTH
     Dosage: 1.1% BRUSH WITH 2X A DAY
     Route: 048
  13. SORBITOL [Concomitant]
     Indication: CONSTIPATION
     Dates: start: 20060721
  14. SORBITOL [Concomitant]
     Dosage: 5-15 ML PRN QD
  15. MYLICON [Concomitant]
     Indication: FLATULENCE
     Dosage: 1-2 TABS QID PRN
  16. SIMETHICONE [Concomitant]
     Dosage: UNK, PRN
  17. FROVA [Concomitant]
  18. SULINDAC [Concomitant]
     Dosage: 150 MG, BID
  19. BONIVA [Concomitant]
     Dosage: 150 MG ONE TIME PER MONTH

REACTIONS (48)
  - ABDOMINAL DISCOMFORT [None]
  - ANGER [None]
  - ANTICHOLINERGIC SYNDROME [None]
  - ARTHRALGIA [None]
  - ASTERIXIS [None]
  - ATROPHIC VULVOVAGINITIS [None]
  - AUTONOMIC NERVOUS SYSTEM IMBALANCE [None]
  - AUTONOMIC NEUROPATHY [None]
  - BONE DISORDER [None]
  - BURSITIS [None]
  - CHEST PAIN [None]
  - CONSTIPATION [None]
  - CONTUSION [None]
  - COSTOCHONDRITIS [None]
  - CRYING [None]
  - DEPRESSION [None]
  - DRY MOUTH [None]
  - DRY SKIN [None]
  - DYSPNOEA [None]
  - ENCEPHALOPATHY [None]
  - FATIGUE [None]
  - FLATULENCE [None]
  - GAIT DISTURBANCE [None]
  - GRANULOCYTE COUNT DECREASED [None]
  - HAEMATOCRIT DECREASED [None]
  - HAEMORRHAGE [None]
  - HYPERSENSITIVITY [None]
  - LUNG CONSOLIDATION [None]
  - LYMPHOCYTE COUNT INCREASED [None]
  - MALIGNANT NEOPLASM PROGRESSION [None]
  - MEAN CELL HAEMOGLOBIN CONCENTRATION INCREASED [None]
  - MUSCLE SPASMS [None]
  - PARAESTHESIA [None]
  - PELVIC DISCOMFORT [None]
  - PIRIFORMIS SYNDROME [None]
  - PNEUMONIA [None]
  - PYREXIA [None]
  - RADIATION INJURY [None]
  - RED BLOOD CELL SEDIMENTATION RATE INCREASED [None]
  - SKIN EXFOLIATION [None]
  - SOMNOLENCE [None]
  - SYSTEMIC LUPUS ERYTHEMATOSUS [None]
  - TETANY [None]
  - UTERINE DILATION AND CURETTAGE [None]
  - VAGINAL HAEMORRHAGE [None]
  - VISION BLURRED [None]
  - WAXY FLEXIBILITY [None]
  - WOUND [None]
